FAERS Safety Report 8736304 (Version 2)
Quarter: 2012Q4

REPORT INFORMATION
  Report Type: 
  Country: GB (occurrence: GB)
  Receive Date: 20120822
  Receipt Date: 20120905
  Transmission Date: 20130627
  Serious: Yes (Other)
  Sender: FDA-Public Use
  Company Number: PHFR2011GB006818

PATIENT
  Sex: Male
  Weight: 84 kg

DRUGS (18)
  1. EVEROLIMUS [Suspect]
     Dosage: UNK UKN, UNK
  2. CLOBAZAM [Concomitant]
     Dosage: 10 mg, PRN
  3. PARACETAMOL [Concomitant]
     Dosage: 20 ml, PRN
  4. MELATONIN [Concomitant]
     Dosage: 6 mg, PRN
  5. EPILIM [Concomitant]
     Dosage: 1800 mg, daily
  6. TEGRETOL [Concomitant]
     Dosage: 1000 mg, daily
  7. PREGABALIN [Concomitant]
     Dosage: 150 mg, daily
  8. RAMIPRIL [Concomitant]
     Dosage: 5 mg, daily
  9. LANSOPRAZOLE [Concomitant]
     Dosage: 30 mg, daily
  10. DOMPERIDONE [Concomitant]
     Dosage: 30 mg, daily
  11. DIFFLAM [Concomitant]
     Dosage: UNK UKN, UNK spray
  12. ANTEPSIN [Concomitant]
     Dosage: 10 mg, UNK
  13. ADCAL-D3 [Concomitant]
     Dosage: 1500 mg/10 micrograms
  14. VITAMIN D3 [Concomitant]
     Dosage: 1 DF, BID
  15. VITAMIN B NOS [Concomitant]
     Dosage: 1 DF, BID
  16. SOLVAZINC [Concomitant]
     Dosage: 125 mg, UNK
  17. ZINC SULFATE [Concomitant]
     Dosage: 1 DF, daily
  18. CORSODYL [Concomitant]

REACTIONS (7)
  - Osteoporosis [Unknown]
  - Expressive language disorder [Unknown]
  - Speech disorder [Unknown]
  - Convulsion [Unknown]
  - Diarrhoea [Recovering/Resolving]
  - Vomiting [Recovering/Resolving]
  - Drug level below therapeutic [Unknown]
